FAERS Safety Report 7563690-0 (Version None)
Quarter: 2011Q2

REPORT INFORMATION
  Report Type: 
  Country: None (occurrence: None)
  Receive Date: 20110621
  Receipt Date: 20110621
  Transmission Date: 20111010
  Serious: Yes (Life-Threatening)
  Sender: FDA-Public Use
  Company Number: None

PATIENT
  Age: 32 Year
  Sex: Female
  Weight: 58.0604 kg

DRUGS (1)
  1. MIRENA [Suspect]
     Indication: CONTRACEPTION
     Dosage: 20 MG DAILY INTRA-UTERINE
     Route: 015
     Dates: start: 20110531, end: 20110613

REACTIONS (6)
  - SUICIDAL IDEATION [None]
  - FEELING ABNORMAL [None]
  - FEAR [None]
  - PALPITATIONS [None]
  - THINKING ABNORMAL [None]
  - FORMICATION [None]
